FAERS Safety Report 14268499 (Version 1)
Quarter: 2017Q4

REPORT INFORMATION
  Report Type: Spontaneous
  Country: CN (occurrence: CN)
  Receive Date: 20171211
  Receipt Date: 20171211
  Transmission Date: 20180321
  Serious: Yes (Hospitalization)
  Sender: FDA-Public Use
  Company Number: CN-PFIZER INC-2017527558

PATIENT
  Age: 60 Year
  Sex: Male

DRUGS (3)
  1. CORDARONE [Suspect]
     Active Substance: AMIODARONE HYDROCHLORIDE
     Dosage: 0.2 G, DAILY
     Route: 048
     Dates: end: 20171019
  2. CORDARONE [Suspect]
     Active Substance: AMIODARONE HYDROCHLORIDE
     Indication: ARRHYTHMIA
     Dosage: 0.2 G, 3X/DAY
     Route: 048
     Dates: start: 20170914
  3. CORDARONE [Suspect]
     Active Substance: AMIODARONE HYDROCHLORIDE
     Dosage: 0.2 G, 2X/DAY
     Route: 048
     Dates: start: 201709

REACTIONS (3)
  - Chest discomfort [Recovering/Resolving]
  - Palpitations [Recovering/Resolving]
  - Electrocardiogram QT prolonged [Recovering/Resolving]

NARRATIVE: CASE EVENT DATE: 20171019
